FAERS Safety Report 4677544-0 (Version None)
Quarter: 2005Q2

REPORT INFORMATION
  Report Type: 
  Country: None (occurrence: None)
  Receive Date: 20050527
  Receipt Date: 20050527
  Transmission Date: 20051028
  Serious: Yes (Death)
  Sender: FDA-Public Use
  Company Number: None

PATIENT
  Age: 63 Year
  Sex: Male
  Weight: 59 kg

DRUGS (9)
  1. LINEZOLID  600 MG [Suspect]
     Indication: ENTEROCOCCAL INFECTION
     Dosage: 600 MG Q12 INTRAVENOUS
     Route: 042
     Dates: start: 20050204, end: 20050213
  2. TRIMETHOPRIM + SULFAMETHOXAZOLE [Suspect]
     Indication: STENOTROPHOMONAS INFECTION
     Dosage: 300 MG Q6H  INTRAVENOUS
     Route: 042
     Dates: start: 20050128, end: 20050217
  3. AMIKACIN [Concomitant]
  4. AMPHOTERICIN B [Concomitant]
  5. CEFEPIME [Concomitant]
  6. CIPR [Concomitant]
  7. IMIPENEM [Concomitant]
  8. VORICONAZOLE [Concomitant]
  9. SYNERCID [Concomitant]

REACTIONS (2)
  - THROMBOCYTOPENIA [None]
  - WHITE BLOOD CELL COUNT DECREASED [None]
